FAERS Safety Report 11873575 (Version 5)
Quarter: 2016Q1

REPORT INFORMATION
  Report Type: Report from Study
  Country: US (occurrence: US)
  Receive Date: 20151228
  Receipt Date: 20160129
  Transmission Date: 20160526
  Serious: No
  Sender: FDA-Public Use
  Company Number: US-AMGEN-USASP2015137026

PATIENT
  Age: 62 Year
  Sex: Female

DRUGS (2)
  1. ENBREL [Suspect]
     Active Substance: ETANERCEPT
     Dosage: UNK
     Route: 065
  2. ENBREL [Suspect]
     Active Substance: ETANERCEPT
     Indication: RHEUMATOID ARTHRITIS
     Dosage: 50 MG, WEEKLY
     Route: 065
     Dates: start: 201507

REACTIONS (14)
  - Musculoskeletal disorder [Unknown]
  - Memory impairment [Unknown]
  - Device issue [Unknown]
  - Mobility decreased [Unknown]
  - Pain [Unknown]
  - Injection site bruising [Unknown]
  - Pain in extremity [Unknown]
  - Injection site erythema [Unknown]
  - Wrong technique in product usage process [Unknown]
  - Extra dose administered [Unknown]
  - Peripheral swelling [Unknown]
  - Drug dose omission [Unknown]
  - Nervousness [Unknown]
  - Fall [Unknown]

NARRATIVE: CASE EVENT DATE: 2015
